FAERS Safety Report 7547366-1 (Version None)
Quarter: 2011Q2

REPORT INFORMATION
  Report Type: 
  Country: None (occurrence: None)
  Receive Date: 20110614
  Receipt Date: 20110608
  Transmission Date: 20111010
  Serious: Yes (Other)
  Sender: FDA-Public Use
  Company Number: AT-GENZYME-THYM-1002066

PATIENT
  Sex: Male
  Weight: 77 kg

DRUGS (13)
  1. PROGRAF [Concomitant]
     Indication: HEART TRANSPLANT
     Dosage: 6 MG, UNK
     Dates: start: 20100307
  2. PREDNISOLONE [Concomitant]
     Indication: HEART TRANSPLANT
     Dosage: 7.5 MG, UNK
     Dates: start: 20100227
  3. CELLCEPT [Concomitant]
     Indication: HEART TRANSPLANT
     Dosage: 2 G, UNK
     Dates: start: 20100219
  4. VALCYTE [Concomitant]
     Indication: ANTIVIRAL PROPHYLAXIS
     Dosage: 200 MG, UNK
     Dates: start: 20100227
  5. THYMOGLOBULIN [Suspect]
     Dosage: UNK
     Route: 042
     Dates: start: 20100222, end: 20100222
  6. ASPIRIN [Concomitant]
     Indication: PROPHYLAXIS
     Dosage: 50 MG, UNK
     Dates: start: 20100302
  7. THYMOGLOBULIN [Suspect]
     Dosage: UNK
     Route: 042
     Dates: start: 20100220, end: 20100220
  8. THYMOGLOBULIN [Suspect]
     Dosage: UNK
     Route: 042
     Dates: start: 20100226, end: 20100226
  9. THYMOGLOBULIN [Suspect]
     Indication: HEART TRANSPLANT
     Dosage: 125 MG/DAY, QD
     Route: 042
     Dates: start: 20100219, end: 20100219
  10. THYMOGLOBULIN [Suspect]
     Dosage: 50 MG/DAY, QD
     Route: 042
     Dates: start: 20100224, end: 20100224
  11. THYMOGLOBULIN [Suspect]
     Dosage: UNK
     Route: 042
     Dates: start: 20100225, end: 20100225
  12. THYMOGLOBULIN [Suspect]
     Dosage: 50 MG/DAY, QD
     Route: 042
     Dates: start: 20100221, end: 20100221
  13. THYMOGLOBULIN [Suspect]
     Dosage: 50 MG/DAY, QD
     Route: 042
     Dates: start: 20100223, end: 20100223

REACTIONS (2)
  - RENAL IMPAIRMENT [None]
  - SERUM SICKNESS [None]
